FAERS Safety Report 9006601 (Version 1)
Quarter: 2012Q4

REPORT INFORMATION
  Report Type: Spontaneous
  Country: DE (occurrence: None)
  Receive Date: 20121227
  Receipt Date: 20121227
  Transmission Date: 20130627
  Serious: Yes (Death, Life-Threatening, Hospitalization, Congenital Anomaly)
  Sender: FDA-Public Use
  Company Number: 2012-22531

PATIENT
  Sex: Male
  Weight: 4 kg

DRUGS (2)
  1. FLUOXETINE HYDROCHLORIDE [Suspect]
     Indication: DEPRESSION
     Dosage: 40 mg/d/after gestational week 29; 20mg/d, Transplacental
     Route: 064
     Dates: start: 20111008, end: 20120627
  2. FEMIBION [Concomitant]

REACTIONS (6)
  - Maternal drugs affecting foetus [None]
  - Double outlet right ventricle [None]
  - Transposition of the great vessels [None]
  - Ventricular septal defect [None]
  - Dialysis [None]
  - Fungal sepsis [None]
